FAERS Safety Report 8780196 (Version 1)
Quarter: 2012Q4

REPORT INFORMATION
  Report Type: Spontaneous
  Country: CA (occurrence: None)
  Receive Date: 20120829
  Receipt Date: 20120829
  Transmission Date: 20130627
  Serious: Yes (Hospitalization, Other)
  Sender: FDA-Public Use
  Company Number: PRED20120047

PATIENT
  Age: 57 Year
  Sex: Female

DRUGS (6)
  1. PREDNISONE [Suspect]
     Indication: PROPHYLAXIS AGAINST TRANSPLANT REJECTION
  2. PREDNISONE [Suspect]
  3. TACROLIMUS [Suspect]
     Indication: PROPHYLAXIS AGAINST TRANSPLANT REJECTION
  4. MYCOPHENOLATE MOFETIL [Suspect]
     Indication: PROPHYLAXIS AGAINST TRANSPLANT REJECTION
  5. INFLIXIMAB [Suspect]
     Indication: CROHN^S DISEASE
  6. ADALIMUMAB [Suspect]
     Indication: CROHN^S DISEASE

REACTIONS (2)
  - Colorectal cancer stage III [None]
  - No therapeutic response [None]
